FAERS Safety Report 6420536-1 (Version None)
Quarter: 2009Q4

REPORT INFORMATION
  Report Type: 
  Country: None (occurrence: None)
  Receive Date: 20091027
  Receipt Date: 20091012
  Transmission Date: 20100525
  Serious: Yes (Disabling)
  Sender: FDA-Public Use
  Company Number: 1000009659

PATIENT
  Age: 45 Year
  Sex: Male
  Weight: 75 kg

DRUGS (6)
  1. ESCITALOPRAM OXALATE [Suspect]
     Indication: DEPRESSION
     Dosage: 10 MG (10 MG,1 IN 1 D),ORAL
     Route: 048
     Dates: start: 20050801
  2. ESCITALOPRAM OXALATE [Suspect]
     Indication: DEPRESSION
     Dosage: 10 MG (10 MG,1 IN 1 D),ORAL
     Route: 048
  3. METHADONE HCL [Concomitant]
  4. PRAZEPAM [Concomitant]
  5. NEXIUM [Concomitant]
  6. MAG 2 [Concomitant]

REACTIONS (3)
  - DRUG DEPENDENCE [None]
  - PAIN [None]
  - WITHDRAWAL SYNDROME [None]
